FAERS Safety Report 25847038 (Version 2)
Quarter: 2025Q4

REPORT INFORMATION
  Report Type: Spontaneous
  Country: EU (occurrence: EU)
  Receive Date: 20250925
  Receipt Date: 20251022
  Transmission Date: 20260117
  Serious: Yes (Other)
  Sender: AUROBINDO
  Company Number: EU-EMB-M202011808-2

PATIENT
  Sex: Female

DRUGS (6)
  1. GABAPENTIN [Suspect]
     Active Substance: GABAPENTIN
     Indication: Complex regional pain syndrome
     Dosage: 600 MILLIGRAM, 3 TIMES A DAY
     Route: 048
     Dates: start: 202009
  2. HYDROMORPHONE [Suspect]
     Active Substance: HYDROMORPHONE
     Indication: Complex regional pain syndrome
     Dosage: 2.6 MILLIGRAM, 3 TIMES A DAY
     Route: 048
     Dates: start: 202009
  3. OCREVUS [Suspect]
     Active Substance: OCRELIZUMAB
     Indication: Multiple sclerosis
     Dosage: 300 MILLIGRAM
     Route: 042
     Dates: start: 202009, end: 202009
  4. PALEXIA [Suspect]
     Active Substance: TAPENTADOL HYDROCHLORIDE
     Indication: Complex regional pain syndrome
     Dosage: UNK (AT LEAST UNTIL GW 6)
     Route: 048
     Dates: start: 202009, end: 202011
  5. ACETAMINOPHEN [Concomitant]
     Active Substance: ACETAMINOPHEN
     Indication: Headache
     Dosage: UNK UNK, AS NECESSARY (AT THE BEGINNING IBUPROFEN, IN THE FURTHER COURSE PARACETAMOL, APPROXIMATELY
     Route: 048
  6. IBUPROFEN [Concomitant]
     Active Substance: IBUPROFEN
     Indication: Headache
     Dosage: UNK UNK, AS NECESSARY (AT THE BEGINNING IBUPROFEN, IN THE FURTHER COURSE PARACETAMOL, APPROXIMATELY
     Route: 048

REACTIONS (2)
  - Gestational diabetes [Recovered/Resolved]
  - Exposure during pregnancy [Unknown]
